FAERS Safety Report 9616843 (Version 2)
Quarter: 2013Q4

REPORT INFORMATION
  Report Type: Spontaneous
  Country: SE (occurrence: SE)
  Receive Date: 20131011
  Receipt Date: 20131011
  Transmission Date: 20140711
  Serious: Yes (Other)
  Sender: FDA-Public Use
  Company Number: SE-PFIZER INC-2013269612

PATIENT
  Sex: Male

DRUGS (6)
  1. PREDNISOLONE [Suspect]
     Indication: POLYMYALGIA RHEUMATICA
     Dosage: 5 MG, UNKNOWN FREQUENCY
     Dates: start: 2006
  2. PREDNISOLONE [Suspect]
     Dosage: 2.5 MG, DAILY
     Dates: start: 2009
  3. SPIRONOLACTONE [Suspect]
     Indication: HEPATIC CIRRHOSIS
     Dosage: 100 MG, DAILY
     Dates: start: 20090421
  4. SPIRONOLACTONE [Suspect]
     Indication: ASCITES
  5. TROMBYL [Suspect]
     Indication: CARDIAC DISORDER
     Dosage: 75 MG, UNKNOWN FREQUENCY
     Dates: start: 201305, end: 20130920
  6. SIMVASTATIN [Concomitant]
     Indication: HYPERLIPIDAEMIA
     Dosage: UNK
     Dates: start: 201305

REACTIONS (2)
  - Nephrolithiasis [Unknown]
  - Haematuria [Recovered/Resolved]
